FAERS Safety Report 5434329-5 (Version None)
Quarter: 2007Q3

REPORT INFORMATION
  Report Type: 
  Country: None (occurrence: None)
  Receive Date: 20070829
  Receipt Date: 20070820
  Transmission Date: 20080115
  Serious: Yes (Hospitalization)
  Sender: FDA-Public Use
  Company Number: 2007001501

PATIENT
  Age: 71 Year
  Sex: Male

DRUGS (5)
  1. ERLOTINIB (TABLET) [Suspect]
     Indication: PANCREATIC CARCINOMA
     Dosage: 100 MG (QD), ORAL
     Route: 048
     Dates: start: 20061219, end: 20070730
  2. GEMCITABINE [Suspect]
     Indication: PANCREATIC CARCINOMA
     Dosage: 1000 MG/ M2 (DAY 1, 8 AND 15 Q4W), INTRAVENOUS
     Route: 042
     Dates: start: 20061229, end: 20070717
  3. FAMOTIDINE [Concomitant]
  4. URSODIOL [Concomitant]
  5. MOSAPRIDE CITRATE (MOSAPRIDE CITRATE) [Concomitant]

REACTIONS (2)
  - CHOLANGITIS [None]
  - METASTASES TO LIVER [None]
